FAERS Safety Report 26195131 (Version 1)
Quarter: 2025Q4

REPORT INFORMATION
  Report Type: Spontaneous
  Country: US (occurrence: None)
  Receive Date: 20251224
  Receipt Date: 20251224
  Transmission Date: 20260118
  Serious: Yes (Hospitalization)
  Sender: FDA-CTU
  Company Number: None

PATIENT
  Age: 81 Year
  Sex: Female

DRUGS (5)
  1. VYNDAQEL [Suspect]
     Active Substance: TAFAMIDIS MEGLUMINE
     Indication: Amyloidosis
     Dosage: TAKE 4 CAPSULES BY MOUTH DAILY.
     Route: 048
     Dates: start: 20241002
  2. AZOPT [Concomitant]
     Active Substance: BRINZOLAMIDE
  3. ELIQUIS [Concomitant]
     Active Substance: APIXABAN
  4. LANTUS [Concomitant]
     Active Substance: INSULIN GLARGINE
  5. VYNDAMAX [Concomitant]
     Active Substance: TAFAMIDIS

REACTIONS (1)
  - Limb operation [None]

NARRATIVE: CASE EVENT DATE: 20251201
